FAERS Safety Report 7085694-7 (Version None)
Quarter: 2010Q4

REPORT INFORMATION
  Report Type: 
  Country: None (occurrence: None)
  Receive Date: 20101027
  Receipt Date: 20101021
  Transmission Date: 20110411
  Serious: Yes (Other)
  Sender: FDA-Public Use
  Company Number: TRP_06642_2009

PATIENT
  Sex: Female

DRUGS (2)
  1. RIBAVARIN [Suspect]
     Indication: PRODUCT USED FOR UNKNOWN INDICATION
     Dosage: (DF)
  2. PEGASYS [Suspect]
     Indication: PRODUCT USED FOR UNKNOWN INDICATION
     Dosage: (DF)

REACTIONS (12)
  - DYSGEUSIA [None]
  - EPISTAXIS [None]
  - FATIGUE [None]
  - GINGIVAL BLEEDING [None]
  - HAEMOGLOBIN DECREASED [None]
  - HAEMORRHOIDAL HAEMORRHAGE [None]
  - INJECTION SITE HAEMATOMA [None]
  - NASAL ULCER [None]
  - PULMONARY HYPERTENSION [None]
  - SCAB [None]
  - TRICUSPID VALVE INCOMPETENCE [None]
  - WEIGHT DECREASED [None]
